FAERS Safety Report 22310151 (Version 1)
Quarter: 2023Q2

REPORT INFORMATION
  Report Type: Spontaneous
  Country: GB (occurrence: GB)
  Receive Date: 20230511
  Receipt Date: 20230511
  Transmission Date: 20230722
  Serious: Yes (Disabling)
  Sender: FDA-Public Use
  Company Number: None

PATIENT
  Sex: Female

DRUGS (11)
  1. SIMVASTATIN [Suspect]
     Active Substance: SIMVASTATIN
     Indication: Product used for unknown indication
     Dosage: 20 MILLIGRAM DAILY; STRENGTH : 20MG, TAKE ONE AT NIGHT,
     Route: 065
  2. APIXABAN [Concomitant]
     Active Substance: APIXABAN
     Indication: Product used for unknown indication
     Dosage: 5 MILLIGRAM DAILY; STRENGTH : 2.5 MG, TAKE ONE TABLET TWICE DAILY
  3. ESOMEPRAZOLE [Concomitant]
     Active Substance: ESOMEPRAZOLE
     Indication: Product used for unknown indication
     Dosage: 20 MILLIGRAM DAILY; STRENGTH : 20 MG, TAKE ONE DAILY
  4. BECLOMETHASONE\FORMOTEROL [Concomitant]
     Active Substance: BECLOMETHASONE\FORMOTEROL
     Indication: Product used for unknown indication
     Dosage: 4 DOSAGE FORMS DAILY; FOSTAIR 100MICROGRAMS/DOSE / 6MICROGRAMS/DOSE INHALER, INHALE TWO PUFFS TWICE
     Route: 055
  5. LEVOTHYROXINE [Concomitant]
     Active Substance: LEVOTHYROXINE
     Indication: Product used for unknown indication
     Dosage: 100 MICROGRAM DAILY; STRENGTH : 100 MCG, TAKE ONE EACH MORNING
  6. LEVOTHYROXINE [Concomitant]
     Active Substance: LEVOTHYROXINE
     Dosage: STRENGTH : 25 MCG, EVERY DAY
  7. METOCLOPRAMIDE [Concomitant]
     Active Substance: METOCLOPRAMIDE
     Indication: Product used for unknown indication
     Dosage: 30 MILLIGRAM DAILY; STRENGTH : 10 MG, TAKE ONE 3 TIMES/DAY, PATIENT HAD BEEN ON METOCLOPRAMIDE SINCE
  8. QUININE SULFATE [Concomitant]
     Active Substance: QUININE SULFATE
     Indication: Muscle spasms
     Dosage: 300 MILLIGRAM DAILY; STRENGTH : 300MG, TAKE ONE AT NIGHT WHEN REQUIRED
  9. QUININE SULFATE [Concomitant]
     Active Substance: QUININE SULFATE
     Dosage: STRENGTH : 200 MG, (TEVA UK LTD)
  10. ALBUTEROL [Concomitant]
     Active Substance: ALBUTEROL
     Indication: Product used for unknown indication
     Dosage: SALAMOL 100MICROGRAMS/DOSE INHALER CFC FREE (ARROW GENERICS LTD), INHALE ONE OR TWO DOSES UP TO FOUR
     Route: 055
  11. SERTRALINE [Concomitant]
     Active Substance: SERTRALINE HYDROCHLORIDE
     Indication: Product used for unknown indication
     Dosage: 100 MILLIGRAM DAILY; STRENGTH : 100 MG, TAKE ONE DAILY

REACTIONS (1)
  - Parkinsonism [Unknown]
